FAERS Safety Report 18264548 (Version 2)
Quarter: 2020Q3

REPORT INFORMATION
  Report Type: Report from Study
  Country: None (occurrence: US)
  Receive Date: 20200915
  Receipt Date: 20200929
  Transmission Date: 20201103
  Serious: Yes (Hospitalization)
  Sender: FDA-Public Use
  Company Number: US-ABBVIE-20K-163-3440140-00

PATIENT
  Age: 61 Year
  Sex: Female
  Weight: 91.25 kg

DRUGS (5)
  1. HUMIRA [Suspect]
     Active Substance: ADALIMUMAB
     Route: 058
  2. HUMIRA [Suspect]
     Active Substance: ADALIMUMAB
     Route: 058
  3. VITAMIN D [Concomitant]
     Active Substance: VITAMIN D NOS
     Indication: PRODUCT USED FOR UNKNOWN INDICATION
  4. POTASSIUM [Concomitant]
     Active Substance: POTASSIUM
     Indication: PRODUCT USED FOR UNKNOWN INDICATION
  5. HUMIRA [Suspect]
     Active Substance: ADALIMUMAB
     Indication: PSORIATIC ARTHROPATHY
     Route: 058

REACTIONS (9)
  - Device issue [Unknown]
  - Back disorder [Recovering/Resolving]
  - Upper limb fracture [Recovering/Resolving]
  - Concussion [Unknown]
  - Sciatica [Recovering/Resolving]
  - Fall [Recovered/Resolved]
  - Nerve injury [Recovering/Resolving]
  - Psoriatic arthropathy [Unknown]
  - Syncope [Unknown]

NARRATIVE: CASE EVENT DATE: 202003
